FAERS Safety Report 6752753-5 (Version None)
Quarter: 2010Q2

REPORT INFORMATION
  Report Type: 
  Country: None (occurrence: None)
  Receive Date: 20100528
  Receipt Date: 20100520
  Transmission Date: 20101027
  Serious: Yes (Hospitalization)
  Sender: FDA-Public Use
  Company Number: CIP10001126

PATIENT
  Age: 81 Year
  Sex: Female

DRUGS (2)
  1. ACTONEL [Suspect]
     Dosage: 150 MG ONCE A MONTH, ORAL
     Route: 048
     Dates: start: 20091219, end: 20100501
  2. ALL OTHER THERAPEUTIC PRODUCTS [Concomitant]

REACTIONS (6)
  - ABNORMAL LOSS OF WEIGHT [None]
  - CONFUSIONAL STATE [None]
  - DECREASED APPETITE [None]
  - FALL [None]
  - NAUSEA [None]
  - VOMITING [None]
